FAERS Safety Report 11292256 (Version 1)
Quarter: 2015Q3

REPORT INFORMATION
  Report Type: Spontaneous
  Country: US (occurrence: None)
  Receive Date: 20150721
  Receipt Date: 20150721
  Transmission Date: 20151125
  Serious: No
  Sender: FDA-Public Use
  Company Number: None

PATIENT
  Age: 68 Year
  Sex: Female
  Weight: 76.2 kg

DRUGS (10)
  1. ANTI ESTROGEN MEDS [Concomitant]
  2. NIACIN. [Concomitant]
     Active Substance: NIACIN
  3. CHOLESTEROL [Concomitant]
     Active Substance: CHOLESTEROL
  4. FISH OIL [Concomitant]
     Active Substance: FISH OIL
  5. CALCIUM [Concomitant]
     Active Substance: CALCIUM
  6. MULTI VITAMIN [Concomitant]
     Active Substance: VITAMINS
  7. BELSOMRA [Suspect]
     Active Substance: SUVOREXANT
     Indication: INSOMNIA
     Dosage: 1 PILL
     Route: 048
  8. D-3 [Concomitant]
     Active Substance: CHOLECALCIFEROL
  9. BLOOD PRESSURE [Concomitant]
  10. LOW DOSE ASPIRIN [Concomitant]
     Active Substance: ASPIRIN

REACTIONS (6)
  - Nightmare [None]
  - Nausea [None]
  - Fatigue [None]
  - Lethargy [None]
  - Anxiety [None]
  - Heart rate abnormal [None]

NARRATIVE: CASE EVENT DATE: 20150713
